FAERS Safety Report 5130478-X (Version None)
Quarter: 2006Q4

REPORT INFORMATION
  Report Type: 
  Country: None (occurrence: None)
  Receive Date: 20061018
  Receipt Date: 20061018
  Transmission Date: 20070319
  Serious: Yes (Other)
  Sender: FDA-Public Use
  Company Number: None

PATIENT
  Sex: Male
  Weight: 85.2762 kg

DRUGS (6)
  1. TAXOL [Suspect]
     Indication: LUNG SQUAMOUS CELL CARCINOMA STAGE UNSPECIFIED
     Dosage: 85MG/M2 IN NS 250MLS = 164MG WK 1,2,3,5,6,7 IV X 3 HOURS
     Route: 042
     Dates: start: 20060629
  2. DECADRON [Concomitant]
  3. PEPCID [Concomitant]
  4. ZOFRAN [Concomitant]
  5. MANNITOL [Concomitant]
  6. BENADRYL [Concomitant]

REACTIONS (3)
  - CHEST PAIN [None]
  - INFUSION RELATED REACTION [None]
  - PARAESTHESIA [None]
